FAERS Safety Report 16766587 (Version 1)
Quarter: 2019Q3

REPORT INFORMATION
  Report Type: Spontaneous
  Country: AR (occurrence: CL)
  Receive Date: 20190903
  Receipt Date: 20190903
  Transmission Date: 20191005
  Serious: Yes (Hospitalization, Other)
  Sender: FDA-Public Use
  Company Number: AR-BAYER-2019-159866

PATIENT
  Age: 63 Year
  Sex: Female

DRUGS (1)
  1. NEXAVAR [Suspect]
     Active Substance: SORAFENIB
     Indication: HEPATOCELLULAR CARCINOMA
     Dosage: 400 MG, BID
     Route: 048
     Dates: start: 20190429

REACTIONS (9)
  - Transaminases increased [None]
  - Autoimmune hepatitis [None]
  - Anal fissure [None]
  - Hepatic encephalopathy [Recovering/Resolving]
  - Hepatic failure [None]
  - Ascites [None]
  - Constipation [Recovered/Resolved]
  - Oedema peripheral [None]
  - Blood bilirubin increased [None]

NARRATIVE: CASE EVENT DATE: 2019
